FAERS Safety Report 16092658 (Version 1)
Quarter: 2019Q1

REPORT INFORMATION
  Report Type: Report from Study
  Country: None (occurrence: US)
  Receive Date: 20190319
  Receipt Date: 20190319
  Transmission Date: 20190418
  Serious: Yes (Hospitalization)
  Sender: FDA-Public Use
  Company Number: US-ABBVIE-19K-163-2611581-00

PATIENT
  Sex: Female

DRUGS (2)
  1. HUMIRA [Suspect]
     Active Substance: ADALIMUMAB
     Indication: CROHN^S DISEASE
     Route: 058
     Dates: start: 2017
  2. METHOTREXATE. [Suspect]
     Active Substance: METHOTREXATE
     Indication: FISTULA
     Route: 065

REACTIONS (5)
  - Oesophagitis [Recovering/Resolving]
  - Toxicity to various agents [Unknown]
  - Stomatitis [Recovering/Resolving]
  - Fistula [Unknown]
  - Clostridium difficile infection [Unknown]

NARRATIVE: CASE EVENT DATE: 2018
